FAERS Safety Report 6229231-5 (Version None)
Quarter: 2009Q2

REPORT INFORMATION
  Report Type: 
  Country: None (occurrence: None)
  Receive Date: 20090611
  Receipt Date: 20090611
  Transmission Date: 20091009
  Serious: Yes (Hospitalization)
  Sender: FDA-Public Use
  Company Number: None

PATIENT
  Sex: Male
  Weight: 44 kg

DRUGS (5)
  1. CYCLOPHOSPHAMIDE [Suspect]
     Dosage: 1100 MG
  2. DOXIL [Suspect]
     Dosage: 59 MG
  3. PREDNISONE [Suspect]
     Dosage: 500 MG
  4. RITUXIMAB (MOAB C2B8 ANTI CD20, CHIMERIC) [Suspect]
     Dosage: 550 MG
  5. VINCRISTINE SULFATE [Suspect]
     Dosage: 2 MG

REACTIONS (4)
  - BLOOD PRESSURE ABNORMAL [None]
  - NAUSEA [None]
  - VOMITING [None]
  - WEIGHT DECREASED [None]
